FAERS Safety Report 4484721-0 (Version None)
Quarter: 2004Q4

REPORT INFORMATION
  Report Type: 
  Country: None (occurrence: None)
  Receive Date: 20041025
  Receipt Date: 20041021
  Transmission Date: 20050328
  Serious: Yes (Hospitalization)
  Sender: FDA-Public Use
  Company Number: AU-MERCK-0410AUS00244

PATIENT
  Age: 80 Year
  Sex: Female

DRUGS (2)
  1. VIOXX [Suspect]
     Route: 048
     Dates: start: 20010101, end: 20040301
  2. ATENOLOL [Concomitant]
     Route: 065

REACTIONS (4)
  - DEHYDRATION [None]
  - DIZZINESS [None]
  - LOSS OF CONSCIOUSNESS [None]
  - STOMACH DISCOMFORT [None]
